FAERS Safety Report 7374809-9 (Version None)
Quarter: 2011Q1

REPORT INFORMATION
  Report Type: 
  Country: None (occurrence: None)
  Receive Date: 20110325
  Receipt Date: 20101214
  Transmission Date: 20110831
  Serious: No
  Sender: FDA-Public Use
  Company Number: US-MYLANLABS-2010S1023063

PATIENT
  Age: 71 Year
  Sex: Female

DRUGS (5)
  1. FENTANYL-100 [Suspect]
     Dosage: CHANGED Q. 48 HOURS.
     Route: 062
     Dates: start: 20080101
  2. METHOTREXATE [Concomitant]
  3. ALBUTEROL SULFATE [Concomitant]
  4. LORTAB [Concomitant]
     Dosage: 7.5MG/500MG
  5. LEVOTHYROXINE SODIUM [Concomitant]

REACTIONS (3)
  - HALLUCINATION [None]
  - PAIN [None]
  - DRUG WITHDRAWAL SYNDROME [None]
